FAERS Safety Report 13881797 (Version 1)
Quarter: 2017Q3

REPORT INFORMATION
  Report Type: Spontaneous
  Country: US (occurrence: US)
  Receive Date: 20170818
  Receipt Date: 20170818
  Transmission Date: 20171127
  Serious: No
  Sender: FDA-Public Use
  Company Number: US-009507513-1708USA008110

PATIENT
  Age: 36 Year
  Sex: Female

DRUGS (2)
  1. HYDROCORTONE [Suspect]
     Active Substance: HYDROCORTISONE
     Dosage: 5 MG, AT 3 PM
  2. HYDROCORTONE [Suspect]
     Active Substance: HYDROCORTISONE
     Indication: ADDISON^S DISEASE
     Dosage: 15 MG, EVERY MORNING AT 8 AM

REACTIONS (1)
  - Hypoglycaemia [Unknown]
